FAERS Safety Report 6860328-2 (Version None)
Quarter: 2010Q3

REPORT INFORMATION
  Report Type: 
  Country: None (occurrence: None)
  Receive Date: 20100528
  Receipt Date: 20091202
  Transmission Date: 20110219
  Serious: Yes (Hospitalization, Other)
  Sender: FDA-Public Use
  Company Number: CIP09002992

PATIENT
  Age: 54 Year
  Sex: Female

DRUGS (14)
  1. ACTONEL [Suspect]
     Indication: OSTEOPOROSIS
     Dosage: 35 MG ONCE WEEKLY, ORAL
     Route: 048
     Dates: start: 20061201, end: 20070901
  2. FOSAMAX [Suspect]
     Indication: OSTEOPOROSIS
     Dosage: ORAL
     Route: 048
     Dates: start: 20031101
  3. ZOMETA [Suspect]
     Indication: OSTEOPOROSIS
     Dosage: 4 MG ONCE MONTHLY, IV NOS
     Route: 042
     Dates: start: 20060224, end: 20070614
  4. TARCEVA /01611401/ (ERLOTINIB) [Concomitant]
  5. EFFEXOR XR [Concomitant]
  6. PREVACID [Concomitant]
  7. CARBIDOPA AND LEVODOPA (CARBIDOPA, LEVODOPA) [Concomitant]
  8. FENTANYL-100 [Concomitant]
  9. ERGOCALCIFEROL [Concomitant]
  10. CARAFATE (SUCRALAFATE) [Concomitant]
  11. NEUPOGEN [Concomitant]
  12. ARANESP [Concomitant]
  13. MAGNESIUM (MAGNESIUM) [Concomitant]
  14. ROCEPHIN [Concomitant]

REACTIONS (23)
  - ABSCESS NECK [None]
  - CELLULITIS [None]
  - DYSPHAGIA [None]
  - ERYTHEMA [None]
  - IMPAIRED HEALING [None]
  - JAW DISORDER [None]
  - JAW FRACTURE [None]
  - LOCALISED OEDEMA [None]
  - MASTOIDITIS [None]
  - NECK MASS [None]
  - ORAL CAVITY FISTULA [None]
  - ORAL PAIN [None]
  - ORAL TORUS [None]
  - OSTEOMYELITIS ACUTE [None]
  - OSTEOMYELITIS BACTERIAL [None]
  - OSTEOMYELITIS CHRONIC [None]
  - OSTEONECROSIS [None]
  - PATHOLOGICAL FRACTURE [None]
  - PURULENCE [None]
  - STOMATITIS [None]
  - TENDERNESS [None]
  - TOOTH EXTRACTION [None]
  - WEIGHT DECREASED [None]
